FAERS Safety Report 23351596 (Version 1)
Quarter: 2023Q4

REPORT INFORMATION
  Report Type: Spontaneous
  Country: FR (occurrence: None)
  Receive Date: 20231229
  Receipt Date: 20231229
  Transmission Date: 20240110
  Serious: Yes (Other)
  Sender: FDA-Public Use
  Company Number: 2023A292537

PATIENT
  Sex: Male

DRUGS (1)
  1. SELUMETINIB [Suspect]
     Active Substance: SELUMETINIB
     Route: 048

REACTIONS (5)
  - Neurofibroma [Unknown]
  - Neurofibromatosis [Unknown]
  - Cutaneous symptom [Unknown]
  - Gastrointestinal disorder [Unknown]
  - Off label use [Unknown]
